FAERS Safety Report 20408078 (Version 2)
Quarter: 2022Q1

REPORT INFORMATION
  Report Type: Report from Study
  Country: US (occurrence: US)
  Receive Date: 20220201
  Receipt Date: 20220208
  Transmission Date: 20220423
  Serious: Yes (Hospitalization, Other)
  Sender: FDA-Public Use
  Company Number: US-ADVANZ PHARMA-202201000412

PATIENT

DRUGS (2)
  1. HYDROXYCHLOROQUINE [Suspect]
     Active Substance: HYDROXYCHLOROQUINE
     Indication: Colon cancer
     Dosage: 200 MG, BID (PLAQUENIL) 4-42 (CYCLE1) AND 1-42 (CYCLE2)
     Route: 048
     Dates: start: 20120206, end: 20120229
  2. SUNITINIB MALATE [Suspect]
     Active Substance: SUNITINIB MALATE
     Indication: Colon cancer
     Dosage: 50 MG, QD ON DAYS 1-28
     Route: 048
     Dates: start: 20120206, end: 20120226

REACTIONS (6)
  - Skin ulcer [Not Recovered/Not Resolved]
  - Taste disorder [Not Recovered/Not Resolved]
  - Colonic fistula [Not Recovered/Not Resolved]
  - Skin infection [Not Recovered/Not Resolved]
  - Decreased appetite [Not Recovered/Not Resolved]
  - Fatigue [Not Recovered/Not Resolved]

NARRATIVE: CASE EVENT DATE: 20120227
